FAERS Safety Report 18108810 (Version 3)
Quarter: 2021Q1

REPORT INFORMATION
  Report Type: Spontaneous
  Country: US (occurrence: US)
  Receive Date: 20200804
  Receipt Date: 20210209
  Transmission Date: 20210419
  Serious: Yes (Other)
  Sender: FDA-Public Use
  Company Number: US-ASTRAZENECA-2020SE95419

PATIENT
  Sex: Female

DRUGS (1)
  1. SYMBICORT [Suspect]
     Active Substance: BUDESONIDE\FORMOTEROL FUMARATE DIHYDRATE
     Indication: CHRONIC OBSTRUCTIVE PULMONARY DISEASE
     Dosage: 160?4.5 MCG, TWO TIMES A DAY
     Route: 055

REACTIONS (6)
  - Weight decreased [Unknown]
  - Dizziness [Unknown]
  - Visual impairment [Unknown]
  - Dysstasia [Unknown]
  - Illness [Unknown]
  - Device issue [Unknown]
